FAERS Safety Report 6901545-2 (Version None)
Quarter: 2010Q3

REPORT INFORMATION
  Report Type: 
  Country: None (occurrence: None)
  Receive Date: 20100803
  Receipt Date: 20080211
  Transmission Date: 20110219
  Serious: No
  Sender: FDA-Public Use
  Company Number: US-PFIZER INC-2008014793

PATIENT
  Sex: Male
  Weight: 73.5 kg

DRUGS (3)
  1. LYRICA [Suspect]
     Indication: NEURALGIA
     Dates: start: 20071101
  2. ALPRAZOLAM [Concomitant]
  3. DESMOPRESSIN ACETATE [Concomitant]

REACTIONS (4)
  - DIZZINESS [None]
  - DRY MOUTH [None]
  - JOINT SWELLING [None]
  - WEIGHT INCREASED [None]
